FAERS Safety Report 4311493-2 (Version None)
Quarter: 2004Q1

REPORT INFORMATION
  Report Type: 
  Country: None (occurrence: None)
  Receive Date: 20040304
  Receipt Date: 20030827
  Transmission Date: 20041129
  Serious: Yes (Death, Hospitalization)
  Sender: FDA-Public Use
  Company Number: PHEH2003US07759

PATIENT
  Age: 78 Year
  Sex: Male
  Weight: 58 kg

DRUGS (3)
  1. CARDIZEM - SLOW RELEASE ^PHARMACIA + UPJOHN^ [Concomitant]
  2. DIABINESE [Concomitant]
  3. LESCOL XL [Suspect]
     Indication: HYPERCHOLESTEROLAEMIA
     Dosage: 80 MG, QD
     Dates: start: 20021023, end: 20030611

REACTIONS (31)
  - ALANINE AMINOTRANSFERASE INCREASED [None]
  - ASPARTATE AMINOTRANSFERASE INCREASED [None]
  - ATRIAL FIBRILLATION [None]
  - BLOOD CREATINE PHOSPHOKINASE INCREASED [None]
  - BLOOD CREATININE INCREASED [None]
  - BLOOD LACTATE DEHYDROGENASE INCREASED [None]
  - BLOOD UREA INCREASED [None]
  - C-REACTIVE PROTEIN INCREASED [None]
  - CARDIAC FAILURE CONGESTIVE [None]
  - CONTUSION [None]
  - DIALYSIS [None]
  - DIFFICULTY IN WALKING [None]
  - DYSURIA [None]
  - ENCEPHALOPATHY [None]
  - EXCORIATION [None]
  - FALL [None]
  - GAIT DISTURBANCE [None]
  - HYPERKALAEMIA [None]
  - JAUNDICE [None]
  - MENTAL STATUS CHANGES [None]
  - METABOLIC ENCEPHALOPATHY [None]
  - MYALGIA [None]
  - MYOGLOBIN BLOOD INCREASED [None]
  - MYOPATHY [None]
  - PAIN IN EXTREMITY [None]
  - PARAESTHESIA [None]
  - PLATELET COUNT DECREASED [None]
  - RENAL FAILURE [None]
  - RENAL FAILURE ACUTE [None]
  - RHABDOMYOLYSIS [None]
  - THROMBOCYTOPENIA [None]
